FAERS Safety Report 10043901 (Version 1)
Quarter: 2014Q1

REPORT INFORMATION
  Report Type: Spontaneous
  Country: US (occurrence: None)
  Receive Date: 20140327
  Receipt Date: 20140327
  Transmission Date: 20141002
  Serious: Yes (Hospitalization)
  Sender: FDA-Public Use
  Company Number: None

PATIENT
  Age: 47 Year
  Sex: Female
  Weight: 60 kg

DRUGS (1)
  1. LEVOFLOXACIN [Suspect]
     Indication: PNEUMONIA
     Dosage: 1 TABLET, QD, ORAL
     Route: 048
     Dates: start: 20140210, end: 20140220

REACTIONS (5)
  - Dyspnoea [None]
  - Cardiac disorder [None]
  - Heart rate irregular [None]
  - Cardiovascular disorder [None]
  - Impaired work ability [None]
